FAERS Safety Report 10005134 (Version 4)
Quarter: 2014Q3

REPORT INFORMATION
  Report Type: Spontaneous
  Country: US (occurrence: US)
  Receive Date: 20140312
  Receipt Date: 20140909
  Transmission Date: 20150326
  Serious: No
  Sender: FDA-Public Use
  Company Number: US-009507513-1403USA003424

PATIENT
  Sex: Male
  Weight: 65.76 kg

DRUGS (1)
  1. PROPECIA [Suspect]
     Active Substance: FINASTERIDE
     Indication: ALOPECIA
     Dosage: 1 MG, DAILY
     Route: 048
     Dates: start: 201003, end: 20120926

REACTIONS (5)
  - Depression [Not Recovered/Not Resolved]
  - Bronchitis [Unknown]
  - Sexual dysfunction [Not Recovered/Not Resolved]
  - Erectile dysfunction [Not Recovered/Not Resolved]
  - Simplex virus test positive [Unknown]

NARRATIVE: CASE EVENT DATE: 2010
